FAERS Safety Report 21712166 (Version 1)
Quarter: 2022Q4

REPORT INFORMATION
  Report Type: Report from Study
  Country: US (occurrence: US)
  Receive Date: 20221212
  Receipt Date: 20221212
  Transmission Date: 20230113
  Serious: Yes (Hospitalization)
  Sender: FDA-Public Use
  Company Number: US-002147023-NVSC2022US283749

PATIENT

DRUGS (1)
  1. ENTRESTO [Suspect]
     Active Substance: SACUBITRIL\VALSARTAN
     Indication: Cardiac failure congestive
     Dosage: 1 DOSAGE FORM, BID (41/59 MG)
     Route: 048
     Dates: start: 2020

REACTIONS (6)
  - Dyspnoea [Unknown]
  - Blood glucose decreased [Unknown]
  - Presyncope [Unknown]
  - Hypotension [Unknown]
  - Dizziness [Unknown]
  - Weight decreased [Unknown]
